FAERS Safety Report 25084113 (Version 1)
Quarter: 2025Q1

REPORT INFORMATION
  Report Type: Spontaneous
  Country: DE (occurrence: DE)
  Receive Date: 20250317
  Receipt Date: 20250317
  Transmission Date: 20250408
  Serious: Yes (Other)
  Sender: ACCORD
  Company Number: DE-MLMSERVICE-20250303-PI367524-00255-1

PATIENT
  Age: 64 Year
  Sex: Female

DRUGS (4)
  1. PACLITAXEL [Suspect]
     Active Substance: PACLITAXEL
     Indication: Ovarian cancer metastatic
  2. CARBOPLATIN [Concomitant]
     Active Substance: CARBOPLATIN
     Indication: Ovarian cancer metastatic
  3. CARBOPLATIN [Concomitant]
     Active Substance: CARBOPLATIN
     Indication: Metastases to peritoneum
  4. PACLITAXEL [Suspect]
     Active Substance: PACLITAXEL
     Indication: Metastases to peritoneum

REACTIONS (1)
  - Renal failure [Unknown]
